FAERS Safety Report 15847197 (Version 1)
Quarter: 2019Q1

REPORT INFORMATION
  Report Type: Spontaneous
  Country: CA (occurrence: CA)
  Receive Date: 20190121
  Receipt Date: 20190121
  Transmission Date: 20190417
  Serious: Yes (Other)
  Sender: FDA-Public Use
  Company Number: CA-ASTELLAS-2019US002402

PATIENT
  Age: 58 Year
  Sex: Male

DRUGS (4)
  1. TACROLIMUS. [Suspect]
     Active Substance: TACROLIMUS
     Indication: RENAL TRANSPLANT
     Route: 065
  2. MYCOPHENOLATE [Suspect]
     Active Substance: MYCOPHENOLIC ACID
     Indication: RENAL TRANSPLANT
     Route: 065
  3. PREDNISONE. [Suspect]
     Active Substance: PREDNISONE
     Indication: RENAL TRANSPLANT
     Route: 065
  4. TACROLIMUS. [Suspect]
     Active Substance: TACROLIMUS
     Dosage: UNK UNK, UNKNOWN FREQ. (TARGET TROUGH LEVEL OF 4-6 MICROG/L)
     Route: 065

REACTIONS (12)
  - Transplant failure [Unknown]
  - Thrombosis [Unknown]
  - Pulmonary embolism [Unknown]
  - Transplant rejection [Unknown]
  - Malacoplakia [Unknown]
  - Hydronephrosis [Unknown]
  - Klebsiella infection [Unknown]
  - Enterobacter infection [Unknown]
  - Escherichia infection [Unknown]
  - Abdominal wall abscess [Unknown]
  - Renal tubular necrosis [Unknown]
  - Cytomegalovirus viraemia [Unknown]

NARRATIVE: CASE EVENT DATE: 2014
